FAERS Safety Report 13246877 (Version 1)
Quarter: 2017Q1

REPORT INFORMATION
  Report Type: Spontaneous
  Country: US (occurrence: US)
  Receive Date: 20170217
  Receipt Date: 20170217
  Transmission Date: 20170428
  Serious: No
  Sender: FDA-Public Use
  Company Number: US-ASTRAZENECA-2017SE14997

PATIENT

DRUGS (3)
  1. PREDNISONE. [Concomitant]
     Active Substance: PREDNISONE
     Route: 065
  2. DALIRESP [Suspect]
     Active Substance: ROFLUMILAST
     Route: 048
     Dates: start: 20160708
  3. NEBULIZERS/INHALERS [Concomitant]

REACTIONS (2)
  - Condition aggravated [Unknown]
  - Intentional product misuse [Unknown]

NARRATIVE: CASE EVENT DATE: 201702
